FAERS Safety Report 7763787-6 (Version None)
Quarter: 2011Q3

REPORT INFORMATION
  Report Type: 
  Country: None (occurrence: None)
  Receive Date: 20110919
  Receipt Date: 20110905
  Transmission Date: 20111222
  Serious: Yes (Other)
  Sender: FDA-Public Use
  Company Number: 7068123

PATIENT
  Age: 41 Year
  Sex: Female

DRUGS (3)
  1. LEVOTHYROXINE SODIUM [Suspect]
     Indication: PRODUCT USED FOR UNKNOWN INDICATION
  2. PURAN T4 (LEVOTHYROXINE SODIUM) [Concomitant]
  3. REBIF [Suspect]
     Indication: RELAPSING-REMITTING MULTIPLE SCLEROSIS
     Dosage: 9.4286 MCG (22 MCG, 3 IN 1 WK)
     Dates: start: 20071015

REACTIONS (6)
  - PAIN IN EXTREMITY [None]
  - CHILLS [None]
  - BREAST MASS [None]
  - HEADACHE [None]
  - UTERINE CYST [None]
  - VAGINAL CYST [None]
